FAERS Safety Report 24618511 (Version 2)
Quarter: 2025Q3

REPORT INFORMATION
  Report Type: Spontaneous
  Country: EU (occurrence: EU)
  Receive Date: 20241114
  Receipt Date: 20250809
  Transmission Date: 20251020
  Serious: Yes (Death, Other)
  Sender: ALEXION PHARMACEUTICALS
  Company Number: EU-AstraZeneca-CH-00727654A

PATIENT

DRUGS (1)
  1. DURVALUMAB [Suspect]
     Active Substance: DURVALUMAB
     Indication: Lung carcinoma cell type unspecified stage III

REACTIONS (5)
  - Pneumonitis [Fatal]
  - Anaemia [Recovered/Resolved with Sequelae]
  - Hepatitis [Recovered/Resolved]
  - Thyroiditis [Recovered/Resolved]
  - Skin reaction [Recovered/Resolved]
